FAERS Safety Report 14447986 (Version 1)
Quarter: 2018Q1

REPORT INFORMATION
  Report Type: Spontaneous
  Country: JP (occurrence: JP)
  Receive Date: 20180126
  Receipt Date: 20180126
  Transmission Date: 20180509
  Serious: Yes (Other)
  Sender: FDA-Public Use
  Company Number: JP-BAXALTA-2013BAX027991

PATIENT
  Age: 79 Year
  Sex: Male
  Weight: 78 kg

DRUGS (16)
  1. GASTER [Concomitant]
     Active Substance: FAMOTIDINE
     Dosage: 20MILLIGRAM2X A DAY
     Route: 042
     Dates: start: 20130729, end: 20130801
  2. ADONA [Concomitant]
     Active Substance: CARBAZOCHROME SODIUM SULFONATE
     Indication: HAEMOSTASIS
     Dosage: 100MILLIGRAM1X A DAY
     Route: 042
     Dates: start: 20130707, end: 20130713
  3. CLINDAMYCIN. [Concomitant]
     Active Substance: CLINDAMYCIN
     Indication: ABSCESS
     Dosage: 1.2GRAM2X A DAY
     Route: 042
     Dates: start: 20130729, end: 20130814
  4. ADVATE [Suspect]
     Active Substance: ANTIHEMOPHILIC FACTOR, HUMAN RECOMBINANT
     Indication: HAEMOSTASIS
  5. ADVATE [Suspect]
     Active Substance: ANTIHEMOPHILIC FACTOR, HUMAN RECOMBINANT
     Indication: HAEMOSTASIS
     Dosage: 2000 IU, 1X A DAY
     Route: 042
     Dates: start: 20130704, end: 20130716
  6. TRANSAMIN [Concomitant]
     Active Substance: TRANEXAMIC ACID
     Indication: HAEMOSTASIS
     Dosage: 1GRAM1X A DAY
     Route: 042
     Dates: start: 20130707, end: 20130713
  7. RASENAZOLIN [Concomitant]
     Active Substance: CEFAZOLIN SODIUM
     Dosage: 2GRAM3X A DAY
     Route: 042
     Dates: start: 20130729, end: 20130807
  8. YOKUKANSAN [Concomitant]
     Active Substance: HERBALS
     Indication: NEUROSIS
     Dosage: 2.5GRAM3X A DAY
     Route: 048
     Dates: start: 20130729
  9. GASTER [Concomitant]
     Active Substance: FAMOTIDINE
     Indication: PROPHYLAXIS AGAINST GASTROINTESTINAL ULCER
     Dosage: 10MILLIGRAM2X A DAY
     Route: 042
     Dates: start: 20130704, end: 20130711
  10. ADVATE [Suspect]
     Active Substance: ANTIHEMOPHILIC FACTOR, HUMAN RECOMBINANT
     Indication: FACTOR VIII DEFICIENCY
     Dosage: 1000IU (INTERNATIONAL UNIT)2X A DAY
     Route: 042
     Dates: start: 20130704, end: 20130728
  11. ADVATE [Suspect]
     Active Substance: ANTIHEMOPHILIC FACTOR, HUMAN RECOMBINANT
     Indication: FACTOR VIII DEFICIENCY
     Dosage: 2000IU (INTERNATIONAL UNIT)4X A DAY
     Route: 042
     Dates: start: 20130729, end: 20130806
  12. MEROPENEM. [Concomitant]
     Active Substance: MEROPENEM
     Indication: ABSCESS
     Dosage: .5GRAM
     Route: 042
     Dates: start: 20130703, end: 20130716
  13. DECADRON [Concomitant]
     Active Substance: DEXAMETHASONE
     Indication: ABSCESS
     Dosage: 4MILLIGRAM1X A DAY
     Route: 042
     Dates: start: 20130703, end: 20130710
  14. RASENAZOLIN [Concomitant]
     Active Substance: CEFAZOLIN SODIUM
     Indication: ABSCESS
     Dosage: 2GRAM3X A DAY
     Route: 042
     Dates: start: 20130716, end: 20130719
  15. LULLAN [Concomitant]
     Active Substance: PEROSPIRONE HYDROCHLORIDE
     Indication: INSOMNIA
     Dosage: 4MILLIGRAM1X A DAY
     Route: 048
     Dates: start: 20130729, end: 20130804
  16. CONCENTRATED RED BLOOD CELLS [Concomitant]
     Indication: PRODUCT USED FOR UNKNOWN INDICATION
     Dosage: UNK
     Route: 042
     Dates: start: 20130706, end: 20130707

REACTIONS (3)
  - Application site purpura [Recovered/Resolved]
  - Factor VIII inhibition [Unknown]
  - Bleeding time prolonged [Unknown]

NARRATIVE: CASE EVENT DATE: 20130716
